FAERS Safety Report 6308569-7 (Version None)
Quarter: 2009Q3

REPORT INFORMATION
  Report Type: 
  Country: None (occurrence: None)
  Receive Date: 20090813
  Receipt Date: 20090805
  Transmission Date: 20100115
  Serious: Yes (Hospitalization, Other)
  Sender: FDA-Public Use
  Company Number: US-ABBOTT-09P-163-0588881-00

PATIENT
  Sex: Female

DRUGS (2)
  1. HUMIRA [Suspect]
     Indication: CROHN'S DISEASE
     Dates: start: 20081203, end: 20090726
  2. HUMIRA [Suspect]
     Indication: BEHCET'S SYNDROME

REACTIONS (2)
  - HYPOTENSION [None]
  - STAPHYLOCOCCAL SEPSIS [None]
